FAERS Safety Report 9638003 (Version 1)
Quarter: 2013Q4

REPORT INFORMATION
  Report Type: Spontaneous
  Country: US (occurrence: None)
  Receive Date: 20131021
  Receipt Date: 20131021
  Transmission Date: 20140711
  Serious: No
  Sender: FDA-Public Use
  Company Number: None

PATIENT
  Age: 25 Year
  Sex: Male

DRUGS (1)
  1. ADVATE [Suspect]
     Indication: FACTOR VIII DEFICIENCY
     Dosage: SLOW IV PUSH
     Dates: start: 20060101

REACTIONS (4)
  - Hot flush [None]
  - Feeling hot [None]
  - Haemoglobin increased [None]
  - Therapy cessation [None]
